FAERS Safety Report 6504125-6 (Version None)
Quarter: 2009Q4

REPORT INFORMATION
  Report Type: 
  Country: None (occurrence: None)
  Receive Date: 20091215
  Receipt Date: 20091130
  Transmission Date: 20100525
  Serious: Yes (Hospitalization)
  Sender: FDA-Public Use
  Company Number: 2009003641

PATIENT
  Age: 61 Year
  Sex: Male

DRUGS (5)
  1. ERLOTINIB HYDROCHLORIDE [Suspect]
     Indication: NON-SMALL CELL LUNG CANCER
     Dosage: ORAL
     Route: 048
     Dates: start: 20091014, end: 20091103
  2. GEMCITABINE [Suspect]
     Indication: NON-SMALL CELL LUNG CANCER
     Dosage: (2300 MG), INTRAVENOUS
     Route: 042
     Dates: start: 20090930
  3. CARBOPLATIN [Suspect]
     Indication: NON-SMALL CELL LUNG CANCER
     Dosage: (490 MG), INTRAVENOUS
     Route: 042
     Dates: start: 20090930
  4. ATARAX [Concomitant]
  5. METOCLOPRAMIDE [Concomitant]

REACTIONS (2)
  - ANAEMIA [None]
  - FULL BLOOD COUNT DECREASED [None]
